FAERS Safety Report 17892364 (Version 1)
Quarter: 2020Q2

REPORT INFORMATION
  Report Type: Spontaneous
  Country: FR (occurrence: FR)
  Receive Date: 20200613
  Receipt Date: 20200613
  Transmission Date: 20200714
  Serious: Yes (Hospitalization)
  Sender: FDA-Public Use
  Company Number: FR-AUROBINDO-AUR-APL-2020-029103

PATIENT
  Age: 72 Year
  Sex: Male

DRUGS (2)
  1. TIMOPTOL [Interacting]
     Active Substance: TIMOLOL
     Indication: GLAUCOMA
     Dosage: 1 GTT DROPS, ONCE A DAY
     Route: 047
     Dates: start: 201908
  2. TAMSULOSIN [Suspect]
     Active Substance: TAMSULOSIN
     Indication: BENIGN PROSTATIC HYPERPLASIA
     Dosage: 0.4 MILLIGRAM, ONCE A DAY
     Route: 048

REACTIONS (2)
  - Fall [Recovered/Resolved]
  - Drug interaction [Recovered/Resolved]

NARRATIVE: CASE EVENT DATE: 20190910
